FAERS Safety Report 10574705 (Version 2)
Quarter: 2014Q4

REPORT INFORMATION
  Report Type: Spontaneous
  Country: US (occurrence: US)
  Receive Date: 20141110
  Receipt Date: 20141110
  Transmission Date: 20150529
  Serious: No
  Sender: FDA-Public Use
  Company Number: US-ELI_LILLY_AND_COMPANY-US_0412109587

PATIENT
  Age: 83 Year
  Sex: Female

DRUGS (7)
  1. LISINOPRIL. [Concomitant]
     Active Substance: LISINOPRIL
     Dosage: 40 MG, UNKNOWN
     Route: 065
  2. HUMULIN N [Suspect]
     Active Substance: INSULIN HUMAN
     Indication: TYPE 2 DIABETES MELLITUS
     Dosage: 30 U, EACH MORNING
     Route: 058
     Dates: start: 20041210
  3. HUMULIN N [Suspect]
     Active Substance: INSULIN HUMAN
     Dosage: 30 U, EACH MORNING
     Route: 058
  4. SIMVASTATIN. [Concomitant]
     Active Substance: SIMVASTATIN
     Dosage: 10 MG, UNKNOWN
     Route: 065
  5. XANAX [Concomitant]
     Active Substance: ALPRAZOLAM
     Route: 065
  6. HUMULIN N [Suspect]
     Active Substance: INSULIN HUMAN
     Dosage: 30 U, EACH MORNING
     Route: 058
     Dates: start: 201407
  7. NOVOLIN N [Concomitant]
     Active Substance: INSULIN HUMAN
     Dosage: UNK, UNKNOWN

REACTIONS (4)
  - Hypoacusis [Unknown]
  - Blood cholesterol increased [Unknown]
  - Visual acuity reduced [Not Recovered/Not Resolved]
  - Cataract [Unknown]
